FAERS Safety Report 8012464-5 (Version None)
Quarter: 2011Q4

REPORT INFORMATION
  Report Type: 
  Country: None (occurrence: None)
  Receive Date: 20111228
  Receipt Date: 20111214
  Transmission Date: 20120403
  Serious: Yes (Congenital Anomaly)
  Sender: FDA-Public Use
  Company Number: US-AMGEN-USASP2011068146

PATIENT
  Sex: Female

DRUGS (11)
  1. PROPOXYPHENE HYDROCHLORIDE [Concomitant]
     Dosage: UNK
     Route: 064
  2. OXYCODONE HCL [Concomitant]
     Dosage: UNK
     Route: 064
  3. ESTROPIPATE [Concomitant]
     Dosage: UNK
     Route: 064
  4. LORAZEPAM [Concomitant]
     Dosage: UNK
     Route: 064
  5. ROFECOXIB [Concomitant]
     Dosage: UNK
     Route: 064
  6. GLYBURIDE [Concomitant]
     Dosage: UNK
     Route: 064
  7. ENBREL [Suspect]
     Dosage: UNK
     Route: 064
  8. LANSOPRAZOLE [Concomitant]
     Dosage: UNK
     Route: 064
  9. ASPIRIN [Concomitant]
     Dosage: UNK
     Route: 064
  10. LEFLUNOMIDE [Concomitant]
     Dosage: UNK
     Route: 064
  11. GABAPENTIN [Concomitant]
     Dosage: UNK
     Route: 064

REACTIONS (5)
  - VACTERL SYNDROME [None]
  - ANEURYSM [None]
  - ATRIAL SEPTAL DEFECT [None]
  - VENTRICULAR HYPOKINESIA [None]
  - FOETAL EXPOSURE DURING PREGNANCY [None]
